FAERS Safety Report 24696593 (Version 1)
Quarter: 2024Q4

REPORT INFORMATION
  Report Type: Other
  Country: TW (occurrence: TW)
  Receive Date: 20241204
  Receipt Date: 20241204
  Transmission Date: 20250115
  Serious: Yes (Other)
  Sender: B BRAUN
  Company Number: TW-B.Braun Medical Inc.-2166477

PATIENT
  Age: 36 Year
  Sex: Female

DRUGS (4)
  1. DEXTROSE\MAGNESIUM SULFATE [Suspect]
     Active Substance: DEXTROSE\MAGNESIUM SULFATE
     Indication: Nervous system disorder prophylaxis
  2. RITODRINE HYDROCHLORIDE [Concomitant]
     Active Substance: RITODRINE HYDROCHLORIDE
  3. BETAMETHASONE [Concomitant]
     Active Substance: BETAMETHASONE
  4. ATOSIBAN [Concomitant]
     Active Substance: ATOSIBAN

REACTIONS (4)
  - Hypermagnesaemia [Recovering/Resolving]
  - Maternal exposure during pregnancy [Recovering/Resolving]
  - Off label use [Recovering/Resolving]
  - Blood creatine phosphokinase increased [Recovering/Resolving]
